FAERS Safety Report 18036170 (Version 1)
Quarter: 2020Q3

REPORT INFORMATION
  Report Type: Spontaneous
  Country: US (occurrence: US)
  Receive Date: 20200716
  Receipt Date: 20200716
  Transmission Date: 20201103
  Serious: Yes (Life-Threatening)
  Sender: FDA-Public Use
  Company Number: None

PATIENT
  Age: 67 Year
  Sex: Male

DRUGS (1)
  1. FLUOROURACIL (FLUOROURACIL (PF) 50MG/ML INJ) [Suspect]
     Active Substance: FLUOROURACIL
     Indication: COLORECTAL CANCER STAGE III
     Dates: start: 20181128, end: 20181130

REACTIONS (3)
  - Angina pectoris [None]
  - Acute myocardial infarction [None]
  - Arteriospasm coronary [None]

NARRATIVE: CASE EVENT DATE: 20181205
